FAERS Safety Report 5935968-5 (Version None)
Quarter: 2008Q4

REPORT INFORMATION
  Report Type: 
  Country: None (occurrence: None)
  Receive Date: 20081030
  Receipt Date: 20081021
  Transmission Date: 20090506
  Serious: Yes (Other)
  Sender: FDA-Public Use
  Company Number: JP-MERCK-0810USA04197

PATIENT
  Age: 35 Year
  Sex: Male

DRUGS (8)
  1. PEPCID [Suspect]
     Route: 041
     Dates: start: 20081018, end: 20081021
  2. KALIMATE [Concomitant]
     Route: 041
     Dates: start: 20081018
  3. ADONA [Concomitant]
     Route: 042
     Dates: start: 20081018
  4. TRANSAMIN [Concomitant]
     Route: 041
     Dates: start: 20081018
  5. SOLU-MEDROL [Concomitant]
     Route: 041
     Dates: start: 20081018
  6. TIENAM [Concomitant]
     Route: 041
     Dates: start: 20081018
  7. DALACIN S [Concomitant]
     Route: 041
     Dates: start: 20081018
  8. ALBUMINAR [Concomitant]
     Route: 041
     Dates: start: 20081018

REACTIONS (1)
  - VENTRICULAR TACHYCARDIA [None]
